FAERS Safety Report 9709014 (Version 1)
Quarter: 2013Q4

REPORT INFORMATION
  Report Type: Spontaneous
  Country: US (occurrence: US)
  Receive Date: 20131125
  Receipt Date: 20131125
  Transmission Date: 20140711
  Serious: Yes (Death, Other)
  Sender: FDA-Public Use
  Company Number: PHHY2013US133294

PATIENT
  Age: 8 Year
  Sex: Male

DRUGS (5)
  1. CARBOPLATIN [Suspect]
     Indication: BRAIN STEM GLIOMA
     Dosage: 35 MG/M2/DAY
     Route: 042
  2. TEMOZOLOMIDE [Suspect]
     Indication: BRAIN STEM GLIOMA
     Dosage: 75 MG/M2/DAY
     Route: 048
  3. IRINOTECAN [Suspect]
     Indication: BRAIN STEM GLIOMA
     Dosage: 125 MG/M2, UNK
  4. ETOPOSIDE [Suspect]
     Indication: BRAIN STEM GLIOMA
     Dosage: 50 MG/M2 DAILY
     Route: 048
  5. BEVACIZUMAB [Suspect]
     Indication: BRAIN STEM GLIOMA
     Dosage: 15 MG/KG, UNK

REACTIONS (7)
  - Death [Fatal]
  - Hypokalaemia [Unknown]
  - Dehydration [Unknown]
  - Hypertension [Recovered/Resolved]
  - Abdominal pain [Unknown]
  - Diarrhoea [Unknown]
  - Drug effect incomplete [Unknown]
